FAERS Safety Report 6332507-4 (Version None)
Quarter: 2009Q3

REPORT INFORMATION
  Report Type: 
  Country: None (occurrence: None)
  Receive Date: 20090828
  Receipt Date: 20090101
  Transmission Date: 20100115
  Serious: No
  Sender: FDA-Public Use
  Company Number: A0762215A

PATIENT
  Sex: Male

DRUGS (1)
  1. MALARONE [Suspect]
     Indication: MALARIA PROPHYLAXIS
     Route: 048

REACTIONS (1)
  - DRUG INEFFECTIVE [None]
